FAERS Safety Report 4555147-6 (Version None)
Quarter: 2004Q4

REPORT INFORMATION
  Report Type: 
  Country: None (occurrence: None)
  Receive Date: 20041217
  Receipt Date: 20040813
  Transmission Date: 20050328
  Serious: No
  Sender: FDA-Public Use
  Company Number: 2004-BP-05636BP

PATIENT
  Age: 65 Year
  Sex: Male

DRUGS (13)
  1. SPIRIVA [Suspect]
     Indication: CHRONIC OBSTRUCTIVE AIRWAYS DISEASE
     Dosage: 18 MCG (18 MCG), IH
     Route: 055
  2. ADVAIR (SERETIDE MITE) [Concomitant]
  3. XALATAN [Concomitant]
  4. NICOMIDE [Concomitant]
  5. ACETYLSALICYLIC ACID SRT [Concomitant]
  6. FLOMAX [Concomitant]
  7. DIAVAN [Concomitant]
  8. CORDARONE [Concomitant]
  9. SINGULAIR [Concomitant]
  10. PRAVACHOL [Concomitant]
  11. ZYCTEC [Concomitant]
  12. NASAREL (FLUMISOLIDE) [Concomitant]
  13. CELEBREX [Concomitant]

REACTIONS (3)
  - OEDEMA PERIPHERAL [None]
  - PRURITUS [None]
  - URINARY INCONTINENCE [None]
